FAERS Safety Report 8579482-X (Version None)
Quarter: 2012Q3

REPORT INFORMATION
  Report Type: 
  Country: None (occurrence: None)
  Receive Date: 20120808
  Receipt Date: 20120802
  Transmission Date: 20120928
  Serious: Yes (Other)
  Sender: FDA-Public Use
  Company Number: US-GLAXOSMITHKLINE-A0988094A

PATIENT
  Sex: Female

DRUGS (9)
  1. FLUTICASONE PROPIONATE [Suspect]
     Indication: ASTHMA
     Dosage: 1PUFF TWICE PER DAY
     Route: 055
     Dates: start: 20120101
  2. BIRTH CONTROL [Concomitant]
  3. CELEBREX [Concomitant]
  4. SINGULAIR [Concomitant]
  5. CLONAZEPAM [Concomitant]
  6. PROAIR HFA [Concomitant]
     Route: 055
  7. CYMBALTA [Concomitant]
  8. ROPINIROLE [Concomitant]
  9. OLANZAPINE [Concomitant]

REACTIONS (2)
  - PRODUCT QUALITY ISSUE [None]
  - ASTHMA [None]
